FAERS Safety Report 25804291 (Version 4)
Quarter: 2025Q4

REPORT INFORMATION
  Report Type: Report from Study
  Country: US (occurrence: US)
  Receive Date: 20250915
  Receipt Date: 20251028
  Transmission Date: 20260117
  Serious: No
  Sender: MALLINCKRODT
  Company Number: US-MALLINCKRODT-MNK202505721

PATIENT
  Age: 71 Year
  Sex: Male

DRUGS (1)
  1. CORTICOTROPIN [Suspect]
     Active Substance: CORTICOTROPIN
     Indication: Punctate keratitis
     Dosage: 80 UNITS
     Route: 058
     Dates: start: 20250813, end: 2025

REACTIONS (5)
  - Injection site pruritus [Not Recovered/Not Resolved]
  - Headache [Unknown]
  - Injection site pain [Unknown]
  - Respiratory tract infection [Unknown]
  - Therapy non-responder [Unknown]

NARRATIVE: CASE EVENT DATE: 20250101
